FAERS Safety Report 10573297 (Version 1)
Quarter: 2014Q4

REPORT INFORMATION
  Report Type: Spontaneous
  Country: GB (occurrence: GB)
  Receive Date: 20141110
  Receipt Date: 20141110
  Transmission Date: 20150529
  Serious: Yes (Other)
  Sender: FDA-Public Use
  Company Number: GB-TEVA-519903ISR

PATIENT
  Age: 19 Year
  Sex: Male
  Weight: 95 kg

DRUGS (2)
  1. TRAZODONE [Suspect]
     Active Substance: TRAZODONE HYDROCHLORIDE
     Indication: DEPRESSION
     Dosage: 50 TO 150 MG IN ONE OR TWO DOSES DAILY
     Route: 048
     Dates: start: 201407
  2. RISPERIDONE. [Concomitant]
     Active Substance: RISPERIDONE

REACTIONS (2)
  - Vomiting [Not Recovered/Not Resolved]
  - Retching [Not Recovered/Not Resolved]

NARRATIVE: CASE EVENT DATE: 201407
